FAERS Safety Report 6173465-5 (Version None)
Quarter: 2009Q2

REPORT INFORMATION
  Report Type: 
  Country: None (occurrence: None)
  Receive Date: 20090429
  Receipt Date: 20090429
  Transmission Date: 20091009
  Serious: Yes (Other)
  Sender: FDA-Public Use
  Company Number: None

PATIENT
  Sex: Female
  Weight: 80.2867 kg

DRUGS (2)
  1. GLIPIZIDE AND METFORMIN HCL [Suspect]
     Indication: BLOOD GLUCOSE INCREASED
     Dosage: 1 TABLET ONCE A DAY; 1/2 TABLET ONCE A DAY
     Dates: start: 20090117, end: 20090122
  2. GLIPIZIDE AND METFORMIN HCL [Suspect]
     Indication: BLOOD GLUCOSE INCREASED
     Dosage: 1 TABLET ONCE A DAY; 1/2 TABLET ONCE A DAY
     Dates: start: 20090204, end: 20090204

REACTIONS (4)
  - DIARRHOEA [None]
  - HEADACHE [None]
  - HYPOPHAGIA [None]
  - NECK PAIN [None]
